FAERS Safety Report 7535480-6 (Version None)
Quarter: 2011Q2

REPORT INFORMATION
  Report Type: 
  Country: None (occurrence: None)
  Receive Date: 20110609
  Receipt Date: 20110531
  Transmission Date: 20111010
  Serious: Yes (Hospitalization)
  Sender: FDA-Public Use
  Company Number: CH-AMGEN-CHESP2011028349

PATIENT
  Age: 48 Year
  Sex: Female

DRUGS (4)
  1. REMICADE [Concomitant]
     Dosage: 200 MG, UNK
     Dates: start: 20070915, end: 20071115
  2. HYDROXYCHLOROQUINE SULFATE [Concomitant]
     Dosage: 200 MG, 1X/DAY
     Dates: start: 20060706
  3. ENBREL [Suspect]
     Indication: RHEUMATOID ARTHRITIS
     Dosage: 50 MG, WEEKLY
     Route: 058
     Dates: start: 20071112, end: 20110418
  4. LEFLUNOMIDE [Concomitant]
     Dosage: 20 MG, 1X/DAY
     Dates: start: 20070215, end: 20110418

REACTIONS (2)
  - POST PROCEDURAL INFECTION [None]
  - NODULE [None]
